FAERS Safety Report 9568218 (Version 2)
Quarter: 2013Q3

REPORT INFORMATION
  Report Type: Spontaneous
  Country: US (occurrence: US)
  Receive Date: 20130930
  Receipt Date: 20130930
  Transmission Date: 20140515
  Serious: No
  Sender: FDA-Public Use
  Company Number: US-AMGEN-USASP2013043556

PATIENT
  Age: 40 Year
  Sex: Female
  Weight: 108.39 kg

DRUGS (27)
  1. ENBREL [Suspect]
     Indication: PSORIATIC ARTHROPATHY
     Dosage: 50 MG, QWK
     Route: 058
     Dates: start: 20130610, end: 20130731
  2. METHOTREXATE SODIUM [Concomitant]
     Dosage: 25 MG/ML, QWK
     Route: 058
     Dates: start: 20130304
  3. SIMVASTATIN [Concomitant]
     Dosage: 40 MG, QD
     Dates: start: 20120910
  4. PROAIR HFA [Concomitant]
     Indication: DYSPNOEA
     Dosage: TWO PUFFS EVERY FOUR HOURS AS NEEDED
     Dates: start: 20110531
  5. METFORMIN HCL [Concomitant]
     Indication: BLOOD GLUCOSE ABNORMAL
     Dosage: 750 MG, THREE DAILY
     Dates: start: 20120510
  6. VITAMIN D                          /00107901/ [Concomitant]
     Dosage: 50000 UNIT, QMO
     Route: 048
     Dates: start: 20100429
  7. PANTOPRAZOLE SODIUM [Concomitant]
     Dosage: 40 MG, ONE TABLET TWICE DAILY
     Dates: start: 20130318
  8. METOPROLOL SUCCINATE [Concomitant]
     Indication: BLOOD PRESSURE ABNORMAL
     Dosage: 200 MG, QD
     Dates: start: 20110728
  9. SPIRIVA HANDIHALER [Concomitant]
     Dosage: 18 MUG, ONE PUFF DAILY
     Dates: start: 20110915
  10. GABAPENTIN [Concomitant]
     Indication: SCIATICA
     Dosage: 300 MG, QHS
     Route: 048
     Dates: start: 20120201
  11. CELEXA                             /00582602/ [Concomitant]
     Dosage: 20 MG, QD
     Dates: start: 20121113
  12. MAXALT [Concomitant]
     Dosage: 5 MG, ONE TABLET AT ONSET OF HA
     Route: 048
     Dates: start: 20120710
  13. TOPAMAX [Concomitant]
     Dosage: 25 MG 2 TABS TWICE DAILY
     Dates: start: 20130123
  14. HUMALOG [Concomitant]
     Dosage: 100 UNIT/ML SOLUTION AS INSTRUCTED
     Dates: start: 20120710
  15. TRAMADOL [Concomitant]
     Dosage: 50 MG, Q6H UPTO 3X DAILY
     Dates: start: 20120806
  16. OXYCODON [Concomitant]
     Dosage: 5 MG, TID PRN
     Dates: start: 20130403
  17. CLONAZEPAM [Concomitant]
     Dosage: 0.5 MG, TWO TABLETS IN THE AM AND ONE TABLET IN THE AFTERNOON
     Dates: start: 20130107
  18. CLOBETASOL PROPIONATE [Concomitant]
     Dosage: 0.05 %, UNK
     Dates: start: 20120806
  19. ALUMINUM                           /02466801/ [Concomitant]
     Indication: DIABETIC NEUROPATHY
     Dosage: ONE CANE
  20. ALUMINUM                           /02466801/ [Concomitant]
     Indication: PSORIATIC ARTHROPATHY
  21. PROMETHAZINE HCL [Concomitant]
     Dosage: 12.5 MG, BID
     Dates: start: 20121023
  22. FOLIC ACID [Concomitant]
     Dosage: 1 MG, QD
     Dates: start: 20121113
  23. TIZANIDINE HYDROCHLORIDE [Concomitant]
     Indication: BACK PAIN
     Dosage: 4 MG, 1-2 TABLETS EVERY 8 HOURS AS NEEDED
     Dates: start: 20130123
  24. TIZANIDINE HYDROCHLORIDE [Concomitant]
     Indication: MUSCLE SPASMS
  25. SUCRALFATE [Concomitant]
     Dosage: 1 G/ML, 10 ML THREE TIMES DAILY BEFORE MEALS AND AT BEDTIME
     Dates: start: 20130318
  26. NITROSTAT [Concomitant]
     Indication: CHEST PAIN
     Dosage: 0.4 MG, ONE SL Q5 MIN X 3
     Dates: start: 20130722
  27. FLOVENT HFA [Concomitant]
     Dosage: 110 MCG/ACT AERO, 2 PUFFS INH BID
     Dates: start: 20130722

REACTIONS (3)
  - Tenderness [Recovered/Resolved]
  - Rash generalised [Recovering/Resolving]
  - Injection site pain [Recovered/Resolved]
